FAERS Safety Report 9525828 (Version 1)
Quarter: 2013Q1

REPORT INFORMATION
  Report Type: Spontaneous
  Country: US (occurrence: None)
  Receive Date: 20130314
  Receipt Date: 20130314
  Transmission Date: 20140127
  Serious: No
  Sender: FDA-Public Use
  Company Number: 1302USA004603

PATIENT
  Age: 56 Year
  Sex: Female
  Weight: 114.3 kg

DRUGS (3)
  1. RIBAVIRIN (RIBAVIRIN) TABLET, 200 MG [Suspect]
     Indication: HEPATITIS C
     Dosage: UNK
     Dates: start: 20130112
  2. VICTRELIS (BOCEPREVIR) CAPSULE [Suspect]
     Indication: HEPATITIS C
     Dosage: UNK
     Dates: start: 20130210
  3. PEGASYS (PEGINTERFERON ALFA-2A) [Suspect]
     Indication: HEPATITIS C
     Dosage: UNK
     Dates: start: 20130112

REACTIONS (13)
  - Headache [None]
  - Diarrhoea [None]
  - Visual impairment [None]
  - Cough [None]
  - Gastrointestinal disorder [None]
  - Asthenia [None]
  - Tremor [None]
  - Leukopenia [None]
  - Anaemia [None]
  - Metabolic disorder [None]
  - White blood cell count decreased [None]
  - Haemoglobin decreased [None]
  - Malnutrition [None]
